FAERS Safety Report 21856504 (Version 1)
Quarter: 2023Q1

REPORT INFORMATION
  Report Type: Spontaneous
  Country: US (occurrence: US)
  Receive Date: 20230112
  Receipt Date: 20230112
  Transmission Date: 20230417
  Serious: Yes (Other)
  Sender: FDA-Public Use
  Company Number: US-BRISTOL-MYERS SQUIBB COMPANY-2023-005073

PATIENT
  Age: 65 Year
  Sex: Male
  Weight: 127.01 kg

DRUGS (1)
  1. POMALYST [Suspect]
     Active Substance: POMALIDOMIDE
     Indication: Plasma cell myeloma
     Dosage: DOSE: 2 MG; FREQ: ONCE A DAY FOR 21 DAYS THEN OFF FOR 7
     Route: 048
     Dates: start: 20221203, end: 20221224

REACTIONS (1)
  - Cataract [Unknown]
